FAERS Safety Report 19700429 (Version 4)
Quarter: 2022Q1

REPORT INFORMATION
  Report Type: Spontaneous
  Country: ES (occurrence: ES)
  Receive Date: 20210813
  Receipt Date: 20220119
  Transmission Date: 20220423
  Serious: Yes (Life-Threatening, Hospitalization, Other)
  Sender: FDA-Public Use
  Company Number: ES-SA-SAC20210708001172

PATIENT
  Age: 17 Year
  Sex: Male

DRUGS (8)
  1. THYMOGLOBULIN [Suspect]
     Active Substance: LAPINE T-LYMPHOCYTE IMMUNE GLOBULIN
     Indication: Transplant
     Dosage: 180 MG, Q12H
     Route: 042
     Dates: start: 20210703, end: 20210704
  2. THYMOGLOBULIN [Suspect]
     Active Substance: LAPINE T-LYMPHOCYTE IMMUNE GLOBULIN
     Dosage: UNK
  3. ACYCLOVIR [Concomitant]
     Active Substance: ACYCLOVIR
     Indication: Transplant
     Dosage: 750 MG, TID
     Route: 042
     Dates: start: 20210703, end: 20210708
  4. CYCLOPHOSPHAMIDE [Concomitant]
     Active Substance: CYCLOPHOSPHAMIDE
     Indication: Transplant
     Dosage: 3500 MG, QD
     Route: 042
     Dates: start: 20210703, end: 20210706
  5. FLUDARABINE [Concomitant]
     Active Substance: FLUDARABINE PHOSPHATE
     Indication: Transplant
     Route: 042
     Dates: start: 20210703, end: 20210706
  6. ONDANSETRON [Concomitant]
     Active Substance: ONDANSETRON
     Indication: Transplant
     Dosage: 10 MG, 6-8 H
     Route: 048
     Dates: start: 20210703, end: 20210708
  7. OMEPRAZOLE [Concomitant]
     Active Substance: OMEPRAZOLE
     Indication: Transplant
     Dosage: 40 MG, QD
     Route: 042
     Dates: start: 20210703, end: 20210708
  8. SULFAMETHOXAZOLE\TRIMETHOPRIM [Concomitant]
     Active Substance: SULFAMETHOXAZOLE\TRIMETHOPRIM
     Indication: Transplant
     Dosage: 160 MG, Q12H
     Route: 048
     Dates: start: 20210703, end: 20210707

REACTIONS (9)
  - Lactic acidosis [Recovered/Resolved]
  - Distributive shock [Recovered/Resolved]
  - Anaemia [Recovered/Resolved]
  - Metabolic acidosis [Recovered/Resolved]
  - Diastolic hypotension [Recovered/Resolved]
  - Hypovolaemic shock [Unknown]
  - Hypotension [Unknown]
  - Tachycardia [Unknown]
  - Adverse reaction [Unknown]

NARRATIVE: CASE EVENT DATE: 20210701
